FAERS Safety Report 7357039-6 (Version None)
Quarter: 2011Q1

REPORT INFORMATION
  Report Type: 
  Country: None (occurrence: None)
  Receive Date: 20110310
  Receipt Date: 20110310
  Transmission Date: 20110831
  Serious: Yes (Life-Threatening, Disabling)
  Sender: FDA-Public Use
  Company Number: None

PATIENT
  Age: 40 Year
  Sex: Female
  Weight: 63.5036 kg

DRUGS (2)
  1. CIPROFLOXACIN [Suspect]
     Indication: URINARY TRACT INFECTION
     Dates: start: 20090101, end: 20100104
  2. LEVAQUIN [Suspect]
     Indication: STAPHYLOCOCCAL INFECTION

REACTIONS (40)
  - MYALGIA [None]
  - BURNING SENSATION [None]
  - HYPOTENSION [None]
  - ALOPECIA [None]
  - EXTRASYSTOLES [None]
  - BACK PAIN [None]
  - MUSCLE TWITCHING [None]
  - PANIC ATTACK [None]
  - VOMITING [None]
  - BLINDNESS [None]
  - PHOTOPHOBIA [None]
  - ASTHENIA [None]
  - PALPITATIONS [None]
  - MUSCLE ATROPHY [None]
  - TINNITUS [None]
  - TENDON PAIN [None]
  - HYPERHIDROSIS [None]
  - VISUAL ACUITY REDUCED [None]
  - FEELING ABNORMAL [None]
  - WEIGHT DECREASED [None]
  - PERIPHERAL NERVE DESTRUCTION [None]
  - TRANSIENT ISCHAEMIC ATTACK [None]
  - CHILLS [None]
  - INSOMNIA [None]
  - PRESYNCOPE [None]
  - HYPOAESTHESIA [None]
  - DYSGEUSIA [None]
  - DYSKINESIA [None]
  - FEELING OF BODY TEMPERATURE CHANGE [None]
  - ACTIVITIES OF DAILY LIVING IMPAIRED [None]
  - DYSPEPSIA [None]
  - PAIN [None]
  - HYPOPHAGIA [None]
  - NEURALGIA [None]
  - MEMORY IMPAIRMENT [None]
  - RASH [None]
  - NEUROPATHY PERIPHERAL [None]
  - SENSORY DISTURBANCE [None]
  - ARTHRALGIA [None]
  - GASTRIC DILATATION [None]
